FAERS Safety Report 8871715 (Version 1)
Quarter: 2012Q4

REPORT INFORMATION
  Report Type: 
  Country: US (occurrence: US)
  Receive Date: 20121026
  Receipt Date: 20121026
  Transmission Date: 20130627
  Serious: No
  Sender: FDA-Public Use
  Company Number: US-AMGEN-USASP2012048537

PATIENT
  Age: 59 Year
  Sex: Female

DRUGS (7)
  1. ENBREL [Suspect]
     Indication: PRODUCT USED FOR UNKNOWN INDICATION
     Dosage: 50 mg, qwk
     Route: 058
  2. METHOTREXATE [Concomitant]
     Dosage: UNK
  3. FOLIC ACID [Concomitant]
     Dosage: UNK
  4. PHENOBARB                          /00023201/ [Concomitant]
     Dosage: UNK
  5. CALCIUM                            /00060701/ [Concomitant]
     Dosage: UNK
  6. TYLENOL /00020001/ [Concomitant]
     Dosage: 325 mg, UNK
  7. VITAMIN D /00107901/ [Concomitant]
     Dosage: 400 UNK, UNK

REACTIONS (2)
  - Pneumonia [Unknown]
  - Headache [Unknown]
